FAERS Safety Report 13966041 (Version 1)
Quarter: 2017Q3

REPORT INFORMATION
  Report Type: Spontaneous
  Country: GB (occurrence: GB)
  Receive Date: 20170913
  Receipt Date: 20170913
  Transmission Date: 20171128
  Serious: Yes (Hospitalization)
  Sender: FDA-Public Use
  Company Number: GB-BRISTOL-MYERS SQUIBB COMPANY-BMS-2017-080441

PATIENT
  Sex: Male

DRUGS (1)
  1. ELIQUIS [Suspect]
     Active Substance: APIXABAN
     Indication: THROMBOSIS PROPHYLAXIS
     Dosage: 2.5 MG, UNK
     Route: 048
     Dates: start: 201610

REACTIONS (6)
  - Blood potassium abnormal [Unknown]
  - Blood count abnormal [Unknown]
  - Vomiting [Unknown]
  - Hypertension [Unknown]
  - Dehydration [Unknown]
  - Diarrhoea [Unknown]
